FAERS Safety Report 5131088-0 (Version None)
Quarter: 2006Q3

REPORT INFORMATION
  Report Type: 
  Country: None (occurrence: None)
  Receive Date: 20060825
  Receipt Date: 20051107
  Transmission Date: 20061208
  Serious: Yes (Other)
  Sender: FDA-Public Use
  Company Number: 2005152690

PATIENT
  Age: 56 Year
  Sex: Male

DRUGS (1)
  1. VFEND [Suspect]
     Indication: PNEUMONIA FUNGAL
     Dosage: 200 MG (100 MG, BID INTERVAL:EVERY DAY ) ORAL
     Route: 048
     Dates: start: 20050101

REACTIONS (1)
  - DEAFNESS [None]
